FAERS Safety Report 21623708 (Version 1)
Quarter: 2022Q4

REPORT INFORMATION
  Report Type: Spontaneous
  Country: US (occurrence: None)
  Receive Date: 20221119
  Receipt Date: 20221119
  Transmission Date: 20230112
  Serious: Yes (Other)
  Sender: FDA-Public Use
  Company Number: None

PATIENT
  Age: 52 Year
  Sex: Female
  Weight: 53.52 kg

DRUGS (1)
  1. PAXLOVID [Suspect]
     Active Substance: NIRMATRELVIR\RITONAVIR
     Indication: COVID-19
     Dosage: OTHER QUANTITY : 300MG/100MG;?FREQUENCY : TWICE A DAY;?
     Route: 048
     Dates: start: 20221103, end: 20221107

REACTIONS (7)
  - Rebound effect [None]
  - COVID-19 [None]
  - Pain [None]
  - Fatigue [None]
  - Rhinorrhoea [None]
  - Sneezing [None]
  - Nasal congestion [None]

NARRATIVE: CASE EVENT DATE: 20221112
